FAERS Safety Report 18130743 (Version 1)
Quarter: 2020Q3

REPORT INFORMATION
  Report Type: Spontaneous
  Country: GB (occurrence: GB)
  Receive Date: 20200810
  Receipt Date: 20200810
  Transmission Date: 20201103
  Serious: Yes (Hospitalization)
  Sender: FDA-Public Use
  Company Number: GB-UCBSA-2020031245

PATIENT
  Age: 5 Week

DRUGS (1)
  1. LEVETIRACETAM. [Suspect]
     Active Substance: LEVETIRACETAM
     Indication: SEIZURE
     Dosage: 900 MG
     Dates: start: 202007, end: 20200717

REACTIONS (2)
  - Off label use [Unknown]
  - Accidental overdose [Unknown]

NARRATIVE: CASE EVENT DATE: 202007
